FAERS Safety Report 10173106 (Version 1)
Quarter: 2014Q2

REPORT INFORMATION
  Report Type: Spontaneous
  Country: US (occurrence: None)
  Receive Date: 20140416
  Receipt Date: 20140416
  Transmission Date: 20141212
  Serious: No
  Sender: FDA-Public Use
  Company Number: 163-POMAL-14020843

PATIENT
  Age: 64 Year
  Sex: Male
  Weight: 181.89 kg

DRUGS (24)
  1. POMALYST (POMALIDOMIDE) (CAPSULES) [Suspect]
     Indication: PLASMA CELL MYELOMA
     Dosage: 4 MG, 14 IN 28 D, PO
     Route: 048
     Dates: start: 20130919
  2. ACYCLOVIR (ACICLOVIR) [Concomitant]
  3. GABAPENTIN (GABAPENTIN) [Concomitant]
  4. GLIMEPIRIDE (GLIMEPIRIDE) [Concomitant]
  5. LISINOPRIL (LISINOPRIL) [Concomitant]
  6. METFORMIN HCL (METFORMIN HYDROCHLORIDE) [Concomitant]
  7. PREDNISOLONE ACETATE (PREDNISOLONE ACETATE) [Concomitant]
  8. SPIRONOLACTONE (SPIRONOLACTONE) [Concomitant]
  9. TAMSULOSIN HCL (TAMSULOSIN HYDROCHLORIDE) [Concomitant]
  10. TRADJENTA (LINAGLIPTIN) [Concomitant]
  11. ASPIRIN (ACETYLSALICYLIC ACID) [Concomitant]
  12. ECHINACEA (ECHINACEA EXTRACT) [Concomitant]
  13. GLUCOSAMINE-CHONDROITIN (GLUCOSAMINE W/ CHONDROITIN SULFATE) [Concomitant]
  14. FUROSEMIDE (FUROSEMIDE) [Concomitant]
  15. MULTIVITAMINS (MULTIVITAMINS) [Concomitant]
  16. NAPROXEN (NAPROXEN) [Concomitant]
  17. PREDNISONE (PREDNISONE) [Concomitant]
  18. KETOROLAC-THROMETHAMINE (KETOROLAC TROMETHAMINE) [Concomitant]
  19. TYLENOL (PARACETAMOL) [Concomitant]
  20. VITAMIN B12 (CYANOCOBALAMIN) [Concomitant]
  21. VITAMIN C (ASCORBIC ACID) [Concomitant]
  22. VITAMIN D (ERGOCALCIFEROL) [Concomitant]
  23. RANITIDINE HCL (RANITIDINE HYDROCHLORIDE) [Concomitant]
  24. ZOLPIDEM TARTRATE (ZOLPIDEM TARTRATE) [Concomitant]

REACTIONS (3)
  - Gait disturbance [None]
  - Asthenia [None]
  - Neuropathy peripheral [None]
